FAERS Safety Report 13872977 (Version 3)
Quarter: 2018Q1

REPORT INFORMATION
  Report Type: Spontaneous
  Country: JP (occurrence: JP)
  Receive Date: 20170816
  Receipt Date: 20180214
  Transmission Date: 20180508
  Serious: Yes (Hospitalization, Disabling)
  Sender: FDA-Public Use
  Company Number: JP-ASTELLAS-2017JP014578AA

PATIENT
  Age: 40 Year
  Sex: Female
  Weight: 55 kg

DRUGS (13)
  1. ALLEGRA [Concomitant]
     Active Substance: FEXOFENADINE HYDROCHLORIDE
     Indication: URTICARIA CHRONIC
     Route: 048
     Dates: start: 20160722, end: 20160805
  2. ALLEGRA [Concomitant]
     Active Substance: FEXOFENADINE HYDROCHLORIDE
     Indication: MIXED CONNECTIVE TISSUE DISEASE
  3. CELESTAMINE [Concomitant]
     Active Substance: BETAMETHASONE\DEXCHLORPHENIRAMINE MALEATE
     Indication: URTICARIA CHRONIC
     Route: 048
     Dates: start: 201509, end: 201604
  4. POLARAMINE [Concomitant]
     Active Substance: DEXCHLORPHENIRAMINE MALEATE
     Indication: URTICARIA CHRONIC
     Route: 048
     Dates: start: 20160812, end: 20161216
  5. POLARAMINE [Concomitant]
     Active Substance: DEXCHLORPHENIRAMINE MALEATE
     Indication: MIXED CONNECTIVE TISSUE DISEASE
  6. PREDNISOLONE. [Suspect]
     Active Substance: PREDNISOLONE
     Indication: MIXED CONNECTIVE TISSUE DISEASE
     Route: 048
     Dates: start: 20160518, end: 201608
  7. PROGRAF [Suspect]
     Active Substance: TACROLIMUS\TACROLIMUS ANHYDROUS
     Indication: MIXED CONNECTIVE TISSUE DISEASE
  8. PREDNISOLONE. [Suspect]
     Active Substance: PREDNISOLONE
     Indication: URTICARIA CHRONIC
     Route: 048
     Dates: start: 20160420, end: 20160518
  9. PREDNISOLONE. [Suspect]
     Active Substance: PREDNISOLONE
     Route: 048
     Dates: start: 201608, end: 20161216
  10. POLARAMINE [Concomitant]
     Active Substance: DEXCHLORPHENIRAMINE MALEATE
     Indication: DYSPNOEA
  11. PROGRAF [Suspect]
     Active Substance: TACROLIMUS\TACROLIMUS ANHYDROUS
     Indication: URTICARIA CHRONIC
     Dosage: 3 MG, ONCE DAILY, IN THE MORNING
     Route: 048
     Dates: start: 201609, end: 20161018
  12. CELESTAMINE [Concomitant]
     Active Substance: BETAMETHASONE\DEXCHLORPHENIRAMINE MALEATE
     Indication: MIXED CONNECTIVE TISSUE DISEASE
     Route: 048
     Dates: start: 201604, end: 20160420
  13. THYRADIN S [Concomitant]
     Active Substance: LEVOTHYROXINE SODIUM
     Indication: HYPOTHYROIDISM
     Dosage: 25 ?G, ONCE DAILY, IN THE MORNING
     Route: 048
     Dates: start: 201609, end: 20161216

REACTIONS (4)
  - Gestational hypertension [Recovering/Resolving]
  - Maternal exposure during pregnancy [Unknown]
  - Off label use [Unknown]
  - Hypothyroidism [Recovering/Resolving]

NARRATIVE: CASE EVENT DATE: 201609
